FAERS Safety Report 10259650 (Version 3)
Quarter: 2014Q3

REPORT INFORMATION
  Report Type: Spontaneous
  Country: US (occurrence: US)
  Receive Date: 20140625
  Receipt Date: 20140818
  Transmission Date: 20150326
  Serious: Yes (Hospitalization, Other)
  Sender: FDA-Public Use
  Company Number: US-EXELIXIS-CABO-13002501

PATIENT
  Age: 22 Year
  Sex: Male

DRUGS (14)
  1. MILK THISTLE [Concomitant]
     Active Substance: MILK THISTLE
  2. COMETRIQ [Suspect]
     Active Substance: CABOZANTINIB S-MALATE
     Dosage: 60 MG, QD 5D/WEEK
     Dates: end: 201405
  3. N-ACETYLCYSTEINE [Concomitant]
     Active Substance: ACETYLCYSTEINE
  4. MELATONIN [Concomitant]
     Active Substance: MELATONIN
  5. REVERSITOL [Concomitant]
  6. COMETRIQ [Suspect]
     Active Substance: CABOZANTINIB S-MALATE
     Dosage: 60-80MG QD 5D/WEEK
     Dates: start: 2013
  7. TURMERIC [Concomitant]
     Active Substance: TURMERIC
  8. COQ10 [Concomitant]
     Active Substance: UBIDECARENONE
  9. COMETRIQ [Suspect]
     Active Substance: CABOZANTINIB S-MALATE
     Indication: RENAL CANCER
     Dosage: 60 MG, QD
     Route: 048
     Dates: start: 20130220, end: 201302
  10. COMETRIQ [Suspect]
     Active Substance: CABOZANTINIB S-MALATE
     Dosage: 80 MG, QD 5/DAYS WEEK
     Route: 048
     Dates: start: 20130225, end: 2013
  11. COMETRIQ [Suspect]
     Active Substance: CABOZANTINIB S-MALATE
     Dosage: 100 MG, QD
     Route: 048
     Dates: start: 2013, end: 2013
  12. VITAMIN D [Concomitant]
     Active Substance: CHOLECALCIFEROL
  13. CUMIN. [Concomitant]
     Active Substance: CUMIN
  14. COMETRIQ [Suspect]
     Active Substance: CABOZANTINIB S-MALATE
     Dosage: 100 MG, QD 5/DAYS WEEK
     Dates: start: 2013

REACTIONS (11)
  - Hair colour changes [Unknown]
  - Fatigue [Not Recovered/Not Resolved]
  - Insomnia [Unknown]
  - Off label use [Unknown]
  - Acne [Recovered/Resolved]
  - Weight decreased [Unknown]
  - Malignant neoplasm progression [Unknown]
  - Skin burning sensation [Recovered/Resolved]
  - Decreased appetite [Unknown]
  - Convulsion [Unknown]
  - Metastases to bone [Unknown]

NARRATIVE: CASE EVENT DATE: 201303
